FAERS Safety Report 7979599-4 (Version None)
Quarter: 2011Q4

REPORT INFORMATION
  Report Type: 
  Country: None (occurrence: None)
  Receive Date: 20111214
  Receipt Date: 20111207
  Transmission Date: 20120403
  Serious: Yes (Hospitalization)
  Sender: FDA-Public Use
  Company Number: LB-ABBOTT-11P-093-0881876-00

PATIENT
  Sex: Male
  Weight: 38 kg

DRUGS (6)
  1. FER [Concomitant]
     Indication: PRODUCT USED FOR UNKNOWN INDICATION
  2. AZACOL [Concomitant]
     Indication: PRODUCT USED FOR UNKNOWN INDICATION
  3. HUMIRA [Suspect]
     Indication: CROHN'S DISEASE
     Route: 058
     Dates: start: 20100422, end: 20100422
  4. VITAMIN [Concomitant]
     Indication: PRODUCT USED FOR UNKNOWN INDICATION
  5. CORTISONE ACETATE [Concomitant]
     Indication: PRODUCT USED FOR UNKNOWN INDICATION
  6. HUMIRA [Suspect]
     Route: 058
     Dates: end: 20111117

REACTIONS (3)
  - PLEURAL EFFUSION [None]
  - PYREXIA [None]
  - PNEUMONIA [None]
